FAERS Safety Report 4355493-5 (Version None)
Quarter: 2004Q2

REPORT INFORMATION
  Report Type: 
  Country: None (occurrence: None)
  Receive Date: 20040505
  Receipt Date: 20040422
  Transmission Date: 20050107
  Serious: Yes (Hospitalization, Other)
  Sender: FDA-Public Use
  Company Number: 2004021032

PATIENT
  Age: 70 Year
  Sex: Male

DRUGS (7)
  1. DOFETILIDE (DOFETILIDE) [Suspect]
     Indication: ATRIAL FLUTTER
     Dosage: 500 MCG (BID)
  2. DOFETILIDE (DOFETILIDE) [Suspect]
     Indication: ISCHAEMIC CARDIOMYOPATHY
     Dosage: 500 MCG (BID)
  3. CITALOPRAM [Suspect]
     Indication: ANXIETY
  4. DIGOXIN [Concomitant]
  5. LEVOTHYROXINE SODIUM [Concomitant]
  6. FUROSEMIDE [Concomitant]
  7. AMIODARONE HCL [Concomitant]

REACTIONS (12)
  - ANGINA PECTORIS [None]
  - ANXIETY [None]
  - ATRIAL FLUTTER [None]
  - BLOOD CHOLESTEROL INCREASED [None]
  - BLOOD PRESSURE DECREASED [None]
  - DYSPNOEA EXERTIONAL [None]
  - MENTAL DISORDER [None]
  - PLEURAL EFFUSION [None]
  - PULMONARY OEDEMA [None]
  - SLEEP DISORDER [None]
  - TACHYCARDIA [None]
  - WEIGHT DECREASED [None]
